FAERS Safety Report 9793251 (Version 2)
Quarter: 2014Q1

REPORT INFORMATION
  Report Type: Spontaneous
  Country: IT (occurrence: IT)
  Receive Date: 20140102
  Receipt Date: 20140107
  Transmission Date: 20141002
  Serious: Yes (Hospitalization)
  Sender: FDA-Public Use
  Company Number: IT-TEVA-452800ISR

PATIENT
  Age: 60 Year
  Sex: Male

DRUGS (2)
  1. CISPLATINO TEVA ITALIA [Suspect]
  2. GEMZAR [Concomitant]
     Dosage: 1900 MILLIGRAM DAILY;
     Route: 042

REACTIONS (1)
  - Chest pain [Recovered/Resolved with Sequelae]
